FAERS Safety Report 10971398 (Version 2)
Quarter: 2015Q2

REPORT INFORMATION
  Report Type: Spontaneous
  Country: DE (occurrence: DE)
  Receive Date: 20150331
  Receipt Date: 20150423
  Transmission Date: 20150821
  Serious: Yes (Death, Hospitalization)
  Sender: FDA-Public Use
  Company Number: DE-JNJFOC-20150319683

PATIENT
  Age: 58 Year
  Sex: Male
  Weight: 84 kg

DRUGS (16)
  1. SODIUM [Concomitant]
     Active Substance: SODIUM
  2. PRIVIGEN [Concomitant]
     Active Substance: HUMAN IMMUNOGLOBULIN G
  3. SEROQUEL [Concomitant]
     Active Substance: QUETIAPINE FUMARATE
  4. RENAGEL [Concomitant]
     Active Substance: SEVELAMER HYDROCHLORIDE
  5. NEPHROTRANS [Concomitant]
  6. DEKRISTOL [Concomitant]
     Active Substance: CHOLECALCIFEROL
  7. CALCITRIOL. [Concomitant]
     Active Substance: CALCITRIOL
  8. IBRUTINIB [Suspect]
     Active Substance: IBRUTINIB
     Indication: CHRONIC LYMPHOCYTIC LEUKAEMIA
     Route: 048
     Dates: start: 20141211, end: 20141219
  9. PAROXETINE [Concomitant]
     Active Substance: PAROXETINE\PAROXETINE HYDROCHLORIDE
  10. FOSRENOL [Concomitant]
     Active Substance: LANTHANUM CARBONATE
  11. CALCIUM ACETATE. [Concomitant]
     Active Substance: CALCIUM ACETATE
  12. YOMOGI [Concomitant]
  13. PANGROL 20000 [Concomitant]
  14. PANTOPRAZOLE SODIUM. [Concomitant]
     Active Substance: PANTOPRAZOLE SODIUM
  15. PRAMIPEXOLE [Concomitant]
     Active Substance: PRAMIPEXOLE
  16. MIMPARA [CINACALCET HYDROCHLORIDE] [Concomitant]

REACTIONS (5)
  - Cerebral haemorrhage [Fatal]
  - Renal failure [None]
  - Pneumonia [None]
  - Aspiration [None]
  - Acute respiratory failure [None]

NARRATIVE: CASE EVENT DATE: 20141219
